FAERS Safety Report 6488044-X (Version None)
Quarter: 2009Q4

REPORT INFORMATION
  Report Type: 
  Country: None (occurrence: None)
  Receive Date: 20091123
  Receipt Date: 20091016
  Transmission Date: 20100525
  Serious: No
  Sender: FDA-Public Use
  Company Number: 8053369

PATIENT
  Age: 38 Year
  Sex: Male
  Weight: 61.8 kg

DRUGS (5)
  1. CIMZIA [Suspect]
     Indication: CROHN'S DISEASE
     Dosage: 400 MG SC
     Route: 058
     Dates: start: 20090930
  2. WELCHOL [Concomitant]
  3. LEXAPRO [Concomitant]
  4. PROTONIX [Concomitant]
  5. VITAMIN B-12 [Concomitant]

REACTIONS (1)
  - NASOPHARYNGITIS [None]
